FAERS Safety Report 19378812 (Version 1)
Quarter: 2021Q2

REPORT INFORMATION
  Report Type: Spontaneous
  Country: US (occurrence: US)
  Receive Date: 20210606
  Receipt Date: 20210606
  Transmission Date: 20210717
  Serious: Yes (Hospitalization)
  Sender: FDA-Public Use
  Company Number: US-SA-2021SA187166

PATIENT
  Sex: Female

DRUGS (3)
  1. DUPIXENT [Suspect]
     Active Substance: DUPILUMAB
     Indication: ATTENTION DEFICIT HYPERACTIVITY DISORDER
     Dosage: 300 MG, QOW
     Route: 058
     Dates: start: 2020, end: 202012
  2. DUPIXENT [Suspect]
     Active Substance: DUPILUMAB
     Dosage: 300 MG, QOW
     Route: 058
  3. DUPIXENT [Suspect]
     Active Substance: DUPILUMAB
     Indication: DERMATITIS ATOPIC
     Dosage: 600 MG, 1X
     Route: 058

REACTIONS (9)
  - Conjunctivitis [Not Recovered/Not Resolved]
  - Diarrhoea [Recovered/Resolved]
  - Attention deficit hyperactivity disorder [Unknown]
  - Product dose omission issue [Unknown]
  - Tremor [Unknown]
  - Product use in unapproved indication [Unknown]
  - Unevaluable event [Unknown]
  - Hospitalisation [Unknown]
  - Therapeutic response decreased [Unknown]
